FAERS Safety Report 7954097 (Version 3)
Quarter: 2013Q2

REPORT INFORMATION
  Report Type: Spontaneous
  Country: US (occurrence: US)
  Receive Date: 20110520
  Receipt Date: 20130515
  Transmission Date: 20140414
  Serious: Yes (Hospitalization)
  Sender: FDA-Public Use
  Company Number: US-B.I. PHARMACEUTICALS,INC./RIDGEFIELD-2011-BP-13318BP

PATIENT
  Age: 82 Year
  Sex: Female
  Weight: 65.77 kg

DRUGS (6)
  1. PRADAXA [Suspect]
     Indication: ATRIAL FIBRILLATION
     Dosage: 300 MG
     Route: 048
     Dates: start: 20110224, end: 201103
  2. PRADAXA [Suspect]
     Dosage: 300 MG
     Route: 048
     Dates: start: 201103, end: 20110421
  3. CALCIUM [Concomitant]
     Route: 048
  4. HYDROCODONE [Concomitant]
     Dates: start: 20100805, end: 20110412
  5. HYDROXYCHLOROQUINE [Concomitant]
  6. TRIAMTERENE [Concomitant]

REACTIONS (2)
  - Gastrointestinal haemorrhage [Recovered/Resolved]
  - Gastrointestinal haemorrhage [Recovered/Resolved]
